FAERS Safety Report 7037926-9 (Version None)
Quarter: 2010Q4

REPORT INFORMATION
  Report Type: 
  Country: None (occurrence: None)
  Receive Date: 20101011
  Receipt Date: 20101004
  Transmission Date: 20110411
  Serious: Yes (Other)
  Sender: FDA-Public Use
  Company Number: US-BAXTER-2010BH024954

PATIENT
  Age: 19 Year
  Sex: Female

DRUGS (2)
  1. REGLAN [Suspect]
     Indication: NAUSEA
     Route: 042
     Dates: start: 20100713, end: 20100718
  2. PROCHLORPERAZINE [Suspect]
     Indication: NAUSEA
     Route: 042
     Dates: start: 20100713, end: 20100718

REACTIONS (12)
  - CANDIDIASIS [None]
  - CONVULSION [None]
  - DYSKINESIA [None]
  - DYSTONIA [None]
  - GRAND MAL CONVULSION [None]
  - HYPERTENSION [None]
  - MYDRIASIS [None]
  - NAUSEA [None]
  - SPEECH DISORDER [None]
  - STARING [None]
  - TRISMUS [None]
  - VOMITING [None]
